FAERS Safety Report 19217115 (Version 3)
Quarter: 2021Q2

REPORT INFORMATION
  Report Type: Report from Study
  Country: CN (occurrence: CN)
  Receive Date: 20210505
  Receipt Date: 20210604
  Transmission Date: 20210717
  Serious: Yes (Hospitalization)
  Sender: FDA-Public Use
  Company Number: CN-PFIZER INC-2021442052

PATIENT
  Age: 63 Year
  Sex: Male
  Weight: 80 kg

DRUGS (8)
  1. ANZATAX (PACLITAXEL) [Suspect]
     Active Substance: PACLITAXEL
     Indication: SQUAMOUS CELL CARCINOMA OF LUNG
     Dosage: 330 MG, ONCE EVERY THREE WEEKS (Q3W)
     Route: 041
     Dates: start: 20210208, end: 20210208
  2. ANZATAX (PACLITAXEL) [Suspect]
     Active Substance: PACLITAXEL
     Dosage: 336 MG, ONCE EVERY THREE WEEKS (Q3W)
     Route: 041
     Dates: start: 20210324, end: 20210324
  3. BO BEI [Suspect]
     Active Substance: CARBOPLATIN
     Dosage: 714 MG, ONCE EVERY THREE WEEKS (Q3W)
     Route: 041
     Dates: start: 20210324, end: 20210324
  4. BLINDED THERAPY [Suspect]
     Active Substance: INVESTIGATIONAL PRODUCT
     Indication: SQUAMOUS CELL CARCINOMA OF LUNG
     Dosage: UNK
     Dates: start: 20210207, end: 20210207
  5. BLINDED THERAPY [Suspect]
     Active Substance: INVESTIGATIONAL PRODUCT
     Dosage: UNK
     Dates: start: 20210302, end: 20210302
  6. BO BEI [Suspect]
     Active Substance: CARBOPLATIN
     Indication: SQUAMOUS CELL CARCINOMA OF LUNG
     Dosage: 731 MG, ONCE EVERY THREE WEEKS (Q3W)
     Route: 041
     Dates: start: 20210208, end: 20210208
  7. BO BEI [Suspect]
     Active Substance: CARBOPLATIN
     Dosage: 774 MG, ONCE EVERY THREE WEEKS (Q3W)
     Route: 041
     Dates: start: 20210303, end: 20210303
  8. ANZATAX (PACLITAXEL) [Suspect]
     Active Substance: PACLITAXEL
     Dosage: 336 MG, ONCE EVERY THREE WEEKS (Q3W)
     Route: 041
     Dates: start: 20210303, end: 20210303

REACTIONS (3)
  - Anal fistula [Not Recovered/Not Resolved]
  - Haemorrhoids [Recovering/Resolving]
  - Anorectal infection [Recovering/Resolving]

NARRATIVE: CASE EVENT DATE: 20210217
